FAERS Safety Report 7902590-0 (Version None)
Quarter: 2011Q4

REPORT INFORMATION
  Report Type: 
  Country: None (occurrence: None)
  Receive Date: 20111108
  Receipt Date: 20111024
  Transmission Date: 20120403
  Serious: Yes (Other)
  Sender: FDA-Public Use
  Company Number: FR-WATSON-2011-18436

PATIENT
  Age: 47 Year
  Sex: Male
  Weight: 80 kg

DRUGS (3)
  1. ACETAMINOPHEN AND TRAMADOL HCL [Suspect]
     Indication: TOOTHACHE
  2. ACETAMINOPHEN/PROPOXYPHENE/CAFFEINE [Suspect]
     Indication: TOOTHACHE
  3. CODEINE-ACETAMINOPHEN (UNKNOWN) [Suspect]
     Indication: TOOTHACHE
     Dosage: 9.5 G, UNK ACETAMINOPHEN COMBINED WITH CODEINE PHOSPHATE/ TRAMADOL/ PROXYPHENE-CAFFEIN OVER 24 HOURS

REACTIONS (5)
  - VOMITING [None]
  - ACCIDENTAL OVERDOSE [None]
  - NAUSEA [None]
  - HYPERHIDROSIS [None]
  - PALLOR [None]
